FAERS Safety Report 25161865 (Version 1)
Quarter: 2025Q2

REPORT INFORMATION
  Report Type: Spontaneous
  Country: US (occurrence: US)
  Receive Date: 20250404
  Receipt Date: 20250404
  Transmission Date: 20250717
  Serious: Yes (Hospitalization, Other)
  Sender: BRISTOL-MYERS SQUIBB COMPANY
  Company Number: US-BRISTOL-MYERS SQUIBB COMPANY-2025-044971

PATIENT
  Age: 52 Year
  Sex: Female

DRUGS (4)
  1. IPILIMUMAB [Suspect]
     Active Substance: IPILIMUMAB
     Indication: Mesothelioma
  2. NIVOLUMAB [Suspect]
     Active Substance: NIVOLUMAB
     Indication: Mesothelioma
  3. DIMETHYL SULFOXIDE [Suspect]
     Active Substance: DIMETHYL SULFOXIDE
     Indication: Mesothelioma
  4. AMXT-1501 DICAPRATE [Suspect]
     Active Substance: AMXT-1501 DICAPRATE
     Indication: Mesothelioma

REACTIONS (3)
  - Immune-mediated myocarditis [Unknown]
  - Immune-mediated lung disease [Unknown]
  - Immune-mediated enterocolitis [Unknown]
